FAERS Safety Report 7826003-2 (Version None)
Quarter: 2011Q4

REPORT INFORMATION
  Report Type: 
  Country: None (occurrence: None)
  Receive Date: 20111019
  Receipt Date: 20111006
  Transmission Date: 20120403
  Serious: Yes (Death, Life-Threatening, Other)
  Sender: FDA-Public Use
  Company Number: NO-ABBOTT-11P-122-0866118-00

PATIENT
  Sex: Male

DRUGS (6)
  1. ADALIMUMAB [Suspect]
     Indication: CROHN'S DISEASE
     Route: 058
     Dates: start: 20050504, end: 20051110
  2. ADALIMUMAB [Suspect]
  3. INFLIXIMAB [Suspect]
     Indication: CROHN'S DISEASE
     Dosage: INFUSION
     Dates: start: 20040415, end: 20040610
  4. REMICADE [Suspect]
     Indication: CROHN'S DISEASE
     Dosage: 3 INFUSIONS OF 400MG
     Route: 042
     Dates: start: 20040415, end: 20040610
  5. AZATHIOPRINE [Suspect]
     Indication: CROHN'S DISEASE
     Route: 048
     Dates: start: 20040101, end: 20070401
  6. AZATHIOPRINE [Suspect]
     Route: 048
     Dates: start: 19960101, end: 20040101

REACTIONS (8)
  - HEPATOSPLENIC T-CELL LYMPHOMA [None]
  - FISTULA [None]
  - PYREXIA [None]
  - ANAEMIA [None]
  - DRUG INEFFECTIVE [None]
  - LEUKOPENIA [None]
  - THROMBOCYTOPENIA [None]
  - SEPSIS [None]
